FAERS Safety Report 16077291 (Version 1)
Quarter: 2019Q1

REPORT INFORMATION
  Report Type: Report from Study
  Country: GB (occurrence: GB)
  Receive Date: 20190315
  Receipt Date: 20190315
  Transmission Date: 20190418
  Serious: Yes (Other)
  Sender: FDA-Public Use
  Company Number: GB-TEVA-2019-GB-1024538

PATIENT
  Sex: Female

DRUGS (1)
  1. COPAXONE [Suspect]
     Active Substance: GLATIRAMER ACETATE
     Indication: MULTIPLE SCLEROSIS
     Dosage: PRE-FILLED SYRINGE
     Route: 058
     Dates: start: 20190215

REACTIONS (8)
  - Burning sensation [Unknown]
  - Motor dysfunction [Unknown]
  - Adverse reaction [Unknown]
  - Swelling face [Unknown]
  - Palpitations [Unknown]
  - Chest pain [Unknown]
  - Tremor [Unknown]
  - Dysstasia [Unknown]
